FAERS Safety Report 11381796 (Version 1)
Quarter: 2015Q3

REPORT INFORMATION
  Report Type: Spontaneous
  Country: US (occurrence: US)
  Receive Date: 20150814
  Receipt Date: 20150814
  Transmission Date: 20151125
  Serious: Yes (Hospitalization, Other)
  Sender: FDA-Public Use
  Company Number: US-JNJFOC-20150806420

PATIENT
  Sex: Male
  Weight: 113.4 kg

DRUGS (3)
  1. URSODIOL. [Concomitant]
     Active Substance: URSODIOL
     Indication: CHOLELITHIASIS
     Route: 065
     Dates: start: 2012
  2. XARELTO [Suspect]
     Active Substance: RIVAROXABAN
     Indication: DEEP VEIN THROMBOSIS
     Route: 048
     Dates: start: 2012, end: 2013
  3. OMEPRAZOLE. [Concomitant]
     Active Substance: OMEPRAZOLE
     Indication: DYSPEPSIA
     Route: 065
     Dates: start: 2012

REACTIONS (6)
  - Psychotic disorder [Unknown]
  - Hepatic steatosis [Unknown]
  - Hallucination [Unknown]
  - Nephropathy [Unknown]
  - Staphylococcal sepsis [Unknown]
  - Bedridden [Unknown]

NARRATIVE: CASE EVENT DATE: 2012
